FAERS Safety Report 10363494 (Version 2)
Quarter: 2014Q4

REPORT INFORMATION
  Report Type: Spontaneous
  Country: IT (occurrence: IT)
  Receive Date: 20140805
  Receipt Date: 20141126
  Transmission Date: 20150528
  Serious: Yes (Other)
  Sender: FDA-Public Use
  Company Number: IT-PFIZER INC-2014217312

PATIENT
  Age: 66 Year
  Sex: Female

DRUGS (13)
  1. COUMADIN [Concomitant]
     Active Substance: WARFARIN SODIUM
     Indication: CARDIOVASCULAR DISORDER
     Dosage: 1.25 MG, UNK
     Route: 048
     Dates: start: 20120701, end: 20140713
  2. ROVIGON [Concomitant]
     Indication: LIP DRY
  3. NORVASC [Suspect]
     Active Substance: AMLODIPINE BESYLATE
     Indication: HYPERTENSION
     Dosage: 5 MG, DAILY
     Route: 048
     Dates: start: 20060701, end: 20140713
  4. DIURESIX [Concomitant]
     Active Substance: TORSEMIDE
     Indication: HYPERTENSION
     Dosage: 10 MG, AS NEEDED
     Route: 048
  5. FOLINA [Concomitant]
     Active Substance: FOLIC ACID
     Dosage: 5 MG, CYCLIC
     Route: 048
  6. CACIT D3 [Concomitant]
     Active Substance: CALCIUM\CHOLECALCIFEROL
     Indication: OSTEOPOROSIS
     Dosage: UNK
     Route: 048
     Dates: start: 20140703, end: 20140713
  7. PANTORC [Concomitant]
     Active Substance: PANTOPRAZOLE SODIUM
     Indication: CHRONIC GASTRITIS
     Dosage: 20 MG, UNK
     Route: 048
  8. VOLTADVANCE [Concomitant]
     Active Substance: DICLOFENAC SODIUM
     Indication: PAIN
     Dosage: UNK
     Route: 048
     Dates: start: 20140201, end: 20140713
  9. APROVEL [Interacting]
     Active Substance: IRBESARTAN
     Indication: HYPERTENSION
     Dosage: 300 MG, DAILY
     Route: 048
     Dates: start: 20060701, end: 20140713
  10. EUTIROX [Concomitant]
     Active Substance: LEVOTHYROXINE SODIUM
     Indication: HYPOTHYROIDISM
     Dosage: 62.5 UG, UNK
     Route: 048
     Dates: start: 19990701, end: 20140713
  11. HUMIRA [Concomitant]
     Active Substance: ADALIMUMAB
     Indication: PSORIATIC ARTHROPATHY
     Dosage: 40 MG, 1 DF EVERY 20 DAYS
     Route: 058
     Dates: start: 20120701, end: 20140713
  12. DELTACORTENE [Concomitant]
     Active Substance: PREDNISONE
     Indication: PSORIATIC ARTHROPATHY
     Dosage: 5 MG, ALTERNATE DAY
     Route: 048
  13. METHOTREXATE (METHOTREXATE SODIUM) [Concomitant]
     Active Substance: METHOTREXATE SODIUM
     Indication: PSORIATIC ARTHROPATHY
     Dosage: 50 MG, 1 DF EVERY 10 DAYS
     Route: 058

REACTIONS (2)
  - Drug interaction [Recovered/Resolved]
  - Atrial fibrillation [Not Recovered/Not Resolved]

NARRATIVE: CASE EVENT DATE: 20140713
